FAERS Safety Report 5775540-3 (Version None)
Quarter: 2008Q2

REPORT INFORMATION
  Report Type: 
  Country: None (occurrence: None)
  Receive Date: 20080617
  Receipt Date: 20080606
  Transmission Date: 20081010
  Serious: Yes (Hospitalization)
  Sender: FDA-Public Use
  Company Number: US-CVT-080049

PATIENT

DRUGS (16)
  1. RANEXA [Suspect]
     Indication: ANGINA PECTORIS
     Dosage: 500 MG, BID
     Route: 048
     Dates: start: 20080313, end: 20080326
  2. DULCOLAX [Concomitant]
  3. SINGULAIR [Concomitant]
  4. PREDNISONE                         /00044701/ [Concomitant]
  5. NITROGLYCERIN [Concomitant]
  6. SYNTHROID [Concomitant]
  7. LIPITOR                            /01326101/ [Concomitant]
  8. ALLOPURINOL [Concomitant]
  9. ADVAIR DISKUS 100/50 [Concomitant]
  10. PERCOCET [Concomitant]
  11. EFFEXOR [Concomitant]
  12. ASPIRIN [Concomitant]
  13. MOXIFLOXACIN HCL [Concomitant]
  14. ACULAR [Concomitant]
  15. TOBRADEX [Concomitant]
  16. MIRAPEX [Concomitant]

REACTIONS (4)
  - CONTUSION [None]
  - DIZZINESS [None]
  - FALL [None]
  - TREMOR [None]
